FAERS Safety Report 17985474 (Version 1)
Quarter: 2020Q3

REPORT INFORMATION
  Report Type: Spontaneous
  Country: FR (occurrence: FR)
  Receive Date: 20200706
  Receipt Date: 20200706
  Transmission Date: 20201103
  Serious: Yes (Other)
  Sender: FDA-Public Use
  Company Number: FR-PFIZER INC-2020255424

PATIENT
  Age: 68 Year
  Sex: Female

DRUGS (2)
  1. SEROPLEX [Concomitant]
     Active Substance: ESCITALOPRAM OXALATE
     Dosage: 5 MG, EVERYDAY
  2. TOVIAZ [Suspect]
     Active Substance: FESOTERODINE FUMARATE
     Indication: MICTURITION DISORDER
     Dosage: 4 MG, DAILY

REACTIONS (3)
  - Constipation [Unknown]
  - Lacrimation increased [Unknown]
  - Central nervous system lesion [Unknown]
